FAERS Safety Report 4805244-2 (Version None)
Quarter: 2005Q4

REPORT INFORMATION
  Report Type: 
  Country: None (occurrence: None)
  Receive Date: 20051020
  Receipt Date: 20050114
  Transmission Date: 20060501
  Serious: Yes (Other)
  Sender: FDA-Public Use
  Company Number: US-MERCK-0501USA02217

PATIENT
  Age: 64 Year
  Sex: Female

DRUGS (5)
  1. VIOXX [Suspect]
     Indication: BURSITIS
     Route: 048
     Dates: start: 20030401, end: 20040106
  2. VIOXX [Suspect]
     Route: 048
     Dates: start: 20030401, end: 20040101
  3. VIOXX [Suspect]
     Route: 048
     Dates: start: 20040101
  4. ATENOLOL MSD [Concomitant]
     Route: 048
  5. ESTRADIOL [Concomitant]
     Route: 065

REACTIONS (6)
  - CEREBROVASCULAR ACCIDENT [None]
  - CHEST DISCOMFORT [None]
  - DEPRESSION [None]
  - HYPERTENSION [None]
  - MIGRAINE [None]
  - PALPITATIONS [None]
